FAERS Safety Report 5592830-8 (Version None)
Quarter: 2008Q1

REPORT INFORMATION
  Report Type: 
  Country: None (occurrence: None)
  Receive Date: 20080114
  Receipt Date: 20080104
  Transmission Date: 20080703
  Serious: Yes (Hospitalization, Other)
  Sender: FDA-Public Use
  Company Number: 163-21880-07120929

PATIENT
  Age: 79 Year
  Sex: Male
  Weight: 75.7 kg

DRUGS (13)
  1. REVLIMID [Suspect]
     Indication: CHRONIC LYMPHOCYTIC LEUKAEMIA
     Dosage: 2.5 MG, 1 IN 1 D, ORAL
     Route: 048
     Dates: start: 20071210, end: 20071215
  2. RITUXAN [Suspect]
     Indication: CHRONIC LYMPHOCYTIC LEUKAEMIA
     Dosage: 720MG/250ML, WEEKLY, INTRAVENOUS : 608 MG/OVER 15 HRS, INTRAVENOUS
     Route: 042
     Dates: start: 20071231, end: 20071231
  3. RITUXAN [Suspect]
     Indication: CHRONIC LYMPHOCYTIC LEUKAEMIA
     Dosage: 720MG/250ML, WEEKLY, INTRAVENOUS : 608 MG/OVER 15 HRS, INTRAVENOUS
     Route: 042
     Dates: start: 20080101, end: 20080101
  4. BACTRIM DS [Concomitant]
  5. GLIPIZIDE [Concomitant]
  6. ALLOPURINOL [Concomitant]
  7. FORMOTEROL (FORMOTEROL) [Concomitant]
  8. LEVOTHYROXINE SODIUM [Concomitant]
  9. METFORMIN HCL [Concomitant]
  10. ENALAPRIL MALEATE [Concomitant]
  11. GLYBURIDE [Concomitant]
  12. FLONASE [Concomitant]
  13. ASPIRIN [Concomitant]

REACTIONS (22)
  - ANAEMIA [None]
  - BACTERIAL INFECTION [None]
  - CHEST X-RAY ABNORMAL [None]
  - CHILLS [None]
  - CHRONIC OBSTRUCTIVE PULMONARY DISEASE [None]
  - CULTURE POSITIVE [None]
  - CYST [None]
  - DYSPNOEA [None]
  - ELECTROCARDIOGRAM T WAVE ABNORMAL [None]
  - EMPHYSEMA [None]
  - FUNGAL INFECTION [None]
  - HYDRONEPHROSIS [None]
  - INFUSION RELATED REACTION [None]
  - LYMPHADENOPATHY MEDIASTINAL [None]
  - NEUTROPENIA [None]
  - OXYGEN SATURATION DECREASED [None]
  - PNEUMONIA [None]
  - RENAL CYST [None]
  - RENAL FAILURE ACUTE [None]
  - SINUSITIS [None]
  - THROMBOCYTOPENIA [None]
  - TUMOUR LYSIS SYNDROME [None]
